FAERS Safety Report 6274190-2 (Version None)
Quarter: 2009Q3

REPORT INFORMATION
  Report Type: 
  Country: None (occurrence: None)
  Receive Date: 20090720
  Receipt Date: 20090708
  Transmission Date: 20100115
  Serious: Yes (Other)
  Sender: FDA-Public Use
  Company Number: DE-WATSON-2009-03262

PATIENT
  Age: 29 Year
  Sex: Female

DRUGS (2)
  1. FERRLECIT [Suspect]
     Indication: DRUG USE FOR UNKNOWN INDICATION
     Dosage: UNK
     Route: 065
     Dates: start: 20090301, end: 20090301
  2. PREDNISOLONE [Concomitant]
     Indication: CROHN'S DISEASE
     Dosage: UNK
     Route: 048

REACTIONS (3)
  - DRUG ADMINISTRATION ERROR [None]
  - DRUG EXPOSURE DURING PREGNANCY [None]
  - FOETAL HEART RATE ABNORMAL [None]
